FAERS Safety Report 10191164 (Version 1)
Quarter: 2014Q2

REPORT INFORMATION
  Report Type: Spontaneous
  Country: GB (occurrence: GB)
  Receive Date: 20140523
  Receipt Date: 20140523
  Transmission Date: 20141212
  Serious: Yes (Other)
  Sender: FDA-Public Use
  Company Number: GB-TEVA-481956ISR

PATIENT
  Age: 42 Year
  Sex: Male

DRUGS (6)
  1. METOCLOPRAMIDE [Suspect]
     Indication: NAUSEA
     Dates: end: 20140428
  2. ALPRAZOLAM [Concomitant]
  3. AMITRIPTYLINE [Concomitant]
  4. CO-CODAMOL [Concomitant]
     Indication: PAIN
  5. DIAZEPAM [Concomitant]
  6. MORPHINE [Concomitant]
     Indication: PAIN

REACTIONS (7)
  - Confusional state [Recovering/Resolving]
  - Vertigo [Recovering/Resolving]
  - Muscle tightness [Recovering/Resolving]
  - Pain in jaw [Recovering/Resolving]
  - Ear pain [Recovering/Resolving]
  - Pulse abnormal [Recovering/Resolving]
  - Pallor [Recovering/Resolving]
